FAERS Safety Report 7717374-6 (Version None)
Quarter: 2011Q3

REPORT INFORMATION
  Report Type: 
  Country: None (occurrence: None)
  Receive Date: 20110830
  Receipt Date: 20110824
  Transmission Date: 20111222
  Serious: Yes (Hospitalization)
  Sender: FDA-Public Use
  Company Number: US-BAYER-2011-077259

PATIENT
  Age: 73 Year
  Sex: Female
  Weight: 27.937 kg

DRUGS (4)
  1. SORAFENIB (RAF KINASE INHIBITOR) [Suspect]
     Indication: PRODUCT USED FOR UNKNOWN INDICATION
     Dosage: 200 MG, UNK
     Route: 048
     Dates: start: 20101228, end: 20110805
  2. MECLIZINE [Concomitant]
     Indication: VOMITING
  3. VENTOLIN HFA [Concomitant]
     Indication: DYSPNOEA
     Dosage: 90 ?G, PRN
     Dates: start: 20100101
  4. MECLIZINE [Concomitant]
     Indication: NAUSEA
     Dosage: 25 MG, QD
     Dates: start: 20110304

REACTIONS (3)
  - URINARY TRACT INFECTION [None]
  - PYREXIA [None]
  - TACHYCARDIA [None]
